FAERS Safety Report 22166191 (Version 1)
Quarter: 2023Q2

REPORT INFORMATION
  Report Type: Report from Study
  Country: US (occurrence: US)
  Receive Date: 20230403
  Receipt Date: 20230403
  Transmission Date: 20230722
  Serious: Yes (Other)
  Sender: FDA-Public Use
  Company Number: US-TEVA-2023-US-2868872

PATIENT
  Age: 54 Year
  Sex: Female

DRUGS (2)
  1. AUSTEDO [Suspect]
     Active Substance: DEUTETRABENAZINE
     Indication: Tardive dyskinesia
     Dosage: 6 MILLIGRAMS
     Route: 048
     Dates: start: 20230114, end: 2023
  2. AUSTEDO [Suspect]
     Active Substance: DEUTETRABENAZINE
     Dosage: 18 MILLIGRAM DAILY; 9 MILLIGRAMS (MG) TWICE A DAY
     Route: 048
     Dates: start: 2023, end: 20230316

REACTIONS (5)
  - Suicidal ideation [Recovered/Resolved]
  - Mood altered [Unknown]
  - Thinking abnormal [Unknown]
  - Sleep disorder [Unknown]
  - Depression [Recovered/Resolved]

NARRATIVE: CASE EVENT DATE: 20230101
